FAERS Safety Report 9166015 (Version 2)
Quarter: 2013Q2

REPORT INFORMATION
  Report Type: Spontaneous
  Country: GB (occurrence: None)
  Receive Date: 20130301
  Receipt Date: 20130620
  Transmission Date: 20140414
  Serious: Yes (Death)
  Sender: FDA-Public Use
  Company Number: AUR-APL-2013-01415

PATIENT
  Age: 81 Year
  Sex: Male

DRUGS (12)
  1. AMLODIPINE [Suspect]
     Indication: HYPERTENSION
  2. EPREX [Suspect]
     Indication: ANAEMIA
     Dosage: (1 IN 1 WK)
     Route: 042
  3. ALLOPURINOL(ALLOPURINOL) [Concomitant]
  4. ASPIRIN(ACETYLSALICYLIC ACID) [Concomitant]
  5. CEFALEXIN(CEFALEXIN) [Concomitant]
  6. CYPROTERONE(CYPROTERONE) [Concomitant]
  7. DEXAMETHASONE [Concomitant]
  8. FENTANYL(FENTANYL) [Concomitant]
  9. LANSOPRAZOLE(LANSOPRAZOLE) [Concomitant]
  10. METOCLOPRAMIDE(METOCLOPRAMIDE) [Concomitant]
  11. PARACETAMOL(PARACETAMOL) [Concomitant]
  12. SEVELAMER(SEVELAMER) [Concomitant]

REACTIONS (12)
  - Pain in extremity [None]
  - Blood pressure increased [None]
  - Local swelling [None]
  - Pelvic pain [None]
  - Fistula [None]
  - Dialysis [None]
  - Pneumonia [None]
  - Blood sodium decreased [None]
  - Haemoglobin decreased [None]
  - Blood alkaline phosphatase increased [None]
  - Prostate cancer metastatic [None]
  - Malignant neoplasm progression [None]
